FAERS Safety Report 8617581-4 (Version None)
Quarter: 2012Q3

REPORT INFORMATION
  Report Type: 
  Country: None (occurrence: None)
  Receive Date: 20120824
  Receipt Date: 20120119
  Transmission Date: 20120928
  Serious: No
  Sender: FDA-Public Use
  Company Number: US-ASTRAZENECA-2011SE70619

PATIENT
  Age: 59 Year
  Sex: Female

DRUGS (5)
  1. SYMBICORT [Suspect]
     Dosage: 160/4.5 MCG, ONE INHALATION BID (TWO TIMES A DAY)
     Route: 055
  2. PROVENTIL-HFA [Concomitant]
     Dosage: 2 PUFFS Q 6 PM
  3. ALBUTEROL [Concomitant]
     Dosage: 2 PUFFS Q 6 PM (EVERY 6 PM)
  4. SINGULAIR [Concomitant]
     Route: 048
  5. PROAIR HFA [Concomitant]
     Dosage: 2 PUFFS Q 6 PM (EVERY 6 PM)

REACTIONS (6)
  - CHRONIC OBSTRUCTIVE PULMONARY DISEASE [None]
  - DISABILITY [None]
  - HEADACHE [None]
  - ASTHMA [None]
  - BACK PAIN [None]
  - LOSS OF EMPLOYMENT [None]
